FAERS Safety Report 4804097-6 (Version None)
Quarter: 2005Q4

REPORT INFORMATION
  Report Type: 
  Country: None (occurrence: None)
  Receive Date: 20051014
  Receipt Date: 20051006
  Transmission Date: 20060501
  Serious: Yes (Hospitalization)
  Sender: FDA-Public Use
  Company Number: 440008M05USA

PATIENT
  Sex: Male

DRUGS (1)
  1. SEROSTEM                 SOMATROPIN [Suspect]
     Indication: CACHEXIA
     Dosage: 3 MG

REACTIONS (1)
  - SMALL INTESTINAL OBSTRUCTION [None]
